FAERS Safety Report 12116565 (Version 1)
Quarter: 2016Q1

REPORT INFORMATION
  Report Type: Spontaneous
  Country: DE (occurrence: DE)
  Receive Date: 20160225
  Receipt Date: 20160225
  Transmission Date: 20160526
  Serious: Yes (Life-Threatening, Hospitalization)
  Sender: FDA-Public Use
  Company Number: DE-TEVA-635755GER

PATIENT
  Age: 52 Year
  Sex: Female
  Weight: 60 kg

DRUGS (5)
  1. RANITIDIN [Concomitant]
     Active Substance: RANITIDINE HYDROCHLORIDE
     Indication: BREAST CANCER FEMALE
     Route: 042
     Dates: start: 20160106
  2. DEXAMETASON [Concomitant]
     Active Substance: DEXAMETHASONE
     Indication: BREAST CANCER FEMALE
     Route: 042
     Dates: start: 20160106
  3. CLEMASTIN [Concomitant]
     Active Substance: CLEMASTINE
     Indication: BREAST CANCER FEMALE
     Route: 042
     Dates: start: 20160106
  4. PACLITAXEL. [Suspect]
     Active Substance: PACLITAXEL
     Indication: BREAST CANCER FEMALE
     Route: 042
     Dates: start: 20160106
  5. GRANISETRON [Concomitant]
     Active Substance: GRANISETRON
     Indication: BREAST CANCER FEMALE
     Route: 042
     Dates: start: 20160106

REACTIONS (2)
  - Anaphylactic shock [Recovered/Resolved]
  - Resuscitation [Recovered/Resolved]

NARRATIVE: CASE EVENT DATE: 20160106
